FAERS Safety Report 25333749 (Version 3)
Quarter: 2025Q3

REPORT INFORMATION
  Report Type: Report from Study
  Country: EU (occurrence: EU)
  Receive Date: 20250520
  Receipt Date: 20250715
  Transmission Date: 20251020
  Serious: Yes (Other)
  Sender: ROCHE
  Company Number: EU-ROCHE-10000287433

PATIENT

DRUGS (3)
  1. RANIBIZUMAB [Suspect]
     Active Substance: RANIBIZUMAB
     Indication: Neovascular age-related macular degeneration
     Dosage: 0.5 MG, 3 MONTHLY
     Route: 050
  2. BEVACIZUMAB [Suspect]
     Active Substance: BEVACIZUMAB
     Indication: Neovascular age-related macular degeneration
     Dosage: 1.25 MG, 3 MONTHLY
     Route: 050
  3. AFLIBERCEPT [Suspect]
     Active Substance: AFLIBERCEPT
     Indication: Neovascular age-related macular degeneration
     Dosage: 2 MG, 3 MONTHLY
     Route: 050

REACTIONS (6)
  - Endophthalmitis [Unknown]
  - Retinal pigment epithelial tear [Unknown]
  - Suspected transmission of an infectious agent via product [Unknown]
  - Retinal haemorrhage [Unknown]
  - Off label use [Unknown]
  - Off label use [Unknown]
